FAERS Safety Report 4835817-2 (Version None)
Quarter: 2005Q4

REPORT INFORMATION
  Report Type: 
  Country: None (occurrence: None)
  Receive Date: 20051118
  Receipt Date: 20051109
  Transmission Date: 20060501
  Serious: Yes (Hospitalization, Other)
  Sender: FDA-Public Use
  Company Number: 2005153514

PATIENT
  Age: 18 Year
  Sex: Female
  Weight: 55.7924 kg

DRUGS (4)
  1. GEODON [Suspect]
     Indication: MOOD SWINGS
     Dosage: (1 IN 1 D), ORAL
     Route: 048
     Dates: start: 20040504, end: 20040501
  2. REGLAN [Suspect]
     Indication: GASTRIC DISORDER
     Dosage: ORAL
     Route: 048
     Dates: start: 20050201, end: 20050201
  3. ADDERALL 10 [Concomitant]
  4. CLONIDINE [Concomitant]

REACTIONS (4)
  - CONVULSION [None]
  - IMPAIRED GASTRIC EMPTYING [None]
  - PANCREATITIS ACUTE [None]
  - VOCAL CORD NEOPLASM [None]
